FAERS Safety Report 5632882-X (Version None)
Quarter: 2008Q1

REPORT INFORMATION
  Report Type: 
  Country: None (occurrence: None)
  Receive Date: 20080212
  Receipt Date: 20080128
  Transmission Date: 20080703
  Serious: Yes (Death, Hospitalization)
  Sender: FDA-Public Use
  Company Number: 2007BI027267

PATIENT
  Age: 85 Year
  Sex: Male

DRUGS (2)
  1. ZEVALIN [Suspect]
     Indication: HODGKIN'S DISEASE
     Dosage: 568 MBQ; 1X; IV
     Route: 042
     Dates: start: 20071115, end: 20071115
  2. RITUXIMAB [Concomitant]

REACTIONS (4)
  - FALL [None]
  - HEPATITIS [None]
  - LIVER DISORDER [None]
  - POST PROCEDURAL HAEMORRHAGE [None]
